FAERS Safety Report 10654531 (Version 1)
Quarter: 2014Q4

REPORT INFORMATION
  Report Type: Spontaneous
  Country: None (occurrence: None)
  Receive Date: 20141215
  Receipt Date: 20141215
  Transmission Date: 20150529
  Serious: No
  Sender: FDA-Public Use
  Company Number: None

PATIENT
  Age: 55 Year
  Sex: Male
  Weight: 72.58 kg

DRUGS (1)
  1. METFORMIN [Suspect]
     Active Substance: METFORMIN HYDROCHLORIDE
     Indication: DIABETES MELLITUS
     Dosage: 2 PILLS, ONCE DIALY, TAKEN BY MOUTH
     Route: 048
     Dates: start: 20140401, end: 20140601

REACTIONS (2)
  - Activities of daily living impaired [None]
  - Gastric disorder [None]

NARRATIVE: CASE EVENT DATE: 20140401
